FAERS Safety Report 9697045 (Version 1)
Quarter: 2013Q4

REPORT INFORMATION
  Report Type: Spontaneous
  Country: US (occurrence: US)
  Receive Date: 20131120
  Receipt Date: 20131120
  Transmission Date: 20140711
  Serious: Yes (Hospitalization, Other)
  Sender: FDA-Public Use
  Company Number: US-AMGEN-USASP2013080602

PATIENT
  Age: 58 Year
  Sex: Male

DRUGS (5)
  1. XGEVA [Suspect]
     Indication: METASTASES TO BONE
     Route: 065
  2. CALCIUM CARBONATE [Concomitant]
  3. VITAMIN D                          /00107901/ [Concomitant]
  4. SUTENT [Concomitant]
     Dosage: UNK
     Dates: end: 201311
  5. AXITINIB [Concomitant]
     Dosage: UNK
     Dates: end: 201311

REACTIONS (5)
  - Urine magnesium increased [Unknown]
  - Urine calcium increased [Unknown]
  - Hypomagnesaemia [Unknown]
  - Calcium ionised abnormal [Unknown]
  - Hypocalcaemia [Unknown]
